FAERS Safety Report 6554945-7 (Version None)
Quarter: 2010Q1

REPORT INFORMATION
  Report Type: 
  Country: None (occurrence: None)
  Receive Date: 20100126
  Receipt Date: 20100113
  Transmission Date: 20100710
  Serious: Yes (Hospitalization)
  Sender: FDA-Public Use
  Company Number: 2010AL000344

PATIENT
  Age: 23 Year
  Sex: Female

DRUGS (4)
  1. METOCLOPRAMIDE [Suspect]
     Indication: NAUSEA
     Dosage: 10 MG; IV
     Route: 042
     Dates: start: 20060425, end: 20060425
  2. AMOXICILLIN [Concomitant]
  3. ERYTHROMYCIN [Concomitant]
  4. ORAL CONTRACEPTIVE NOS [Concomitant]

REACTIONS (4)
  - DIZZINESS [None]
  - DYSKINESIA [None]
  - HEADACHE [None]
  - PARAESTHESIA [None]
